FAERS Safety Report 4939813-6 (Version None)
Quarter: 2006Q1

REPORT INFORMATION
  Report Type: 
  Country: None (occurrence: None)
  Receive Date: 20060310
  Receipt Date: 20050414
  Transmission Date: 20060701
  Serious: No
  Sender: FDA-Public Use
  Company Number: US-MERCK-0504USA03077

PATIENT
  Age: 40 Year
  Sex: Male
  Weight: 89 kg

DRUGS (3)
  1. VIOXX [Suspect]
     Indication: PAIN
     Route: 048
     Dates: start: 20020601, end: 20030501
  2. VIOXX [Suspect]
     Indication: ARTHRITIS
     Route: 048
     Dates: start: 20020601, end: 20030501
  3. CELEBREX [Concomitant]
     Route: 065

REACTIONS (1)
  - PALPITATIONS [None]
